FAERS Safety Report 10244517 (Version 1)
Quarter: 2014Q1

REPORT INFORMATION
  Report Type: Spontaneous
  Country: US (occurrence: None)
  Receive Date: 20140306
  Receipt Date: 20140306
  Transmission Date: 20141002
  Serious: Yes (Hospitalization, Other)
  Sender: FDA-Public Use
  Company Number: 163-21880-13020278

PATIENT
  Age: 67 Year
  Sex: Male
  Weight: 117.9 kg

DRUGS (5)
  1. REVLIMID (LENALIDOMIDE) (25 MILLIGRAM, CAPSULES) [Suspect]
     Indication: PLASMA CELL MYELOMA
     Dosage: 25 MG, 21 IN 28 D, PO
     Route: 048
     Dates: start: 201301
  2. ASPIRIN EC (ACETYLSALICYLIC ACID) (TABLETS [Concomitant]
  3. COMPLETE MULTIVITAMIN (TABLETS [Concomitant]
  4. GABAPENTIN (CAPSULES) [Concomitant]
  5. PERCOCET (OXYCOCET) (TABLETS) [Concomitant]

REACTIONS (6)
  - Thrombosis [None]
  - Pulmonary thrombosis [None]
  - Feeling abnormal [None]
  - Local swelling [None]
  - Asthenia [None]
  - Vision blurred [None]
